FAERS Safety Report 9472602 (Version 1)
Quarter: 2013Q3

REPORT INFORMATION
  Report Type: Spontaneous
  Country: US (occurrence: US)
  Receive Date: 20130823
  Receipt Date: 20130823
  Transmission Date: 20140515
  Serious: No
  Sender: FDA-Public Use
  Company Number: US-BAYER-2013-101665

PATIENT
  Age: 80 Year
  Sex: Male
  Weight: 97 kg

DRUGS (12)
  1. ALEVE TABLET [Suspect]
     Indication: ARTHRITIS
     Dosage: DF
     Route: 048
     Dates: start: 2012
  2. BAYER ASPIRIN REGIMEN ADULT LOW STRENGTH [Concomitant]
     Indication: ARTHRITIS
     Dosage: UNK UNK, PRN
  3. AMLODIPINE [Concomitant]
  4. CILOSTAZOL [Concomitant]
  5. CLONIDINE [Concomitant]
  6. CLOPIDOGREL BISULFATE [Concomitant]
  7. SIMVASTATIN [Concomitant]
  8. FLUOCINONIDE [FLUOCINONIDE] [Concomitant]
  9. FUROSEMIDE [Concomitant]
  10. HYDROCORTIZON [Concomitant]
  11. LISINOPRIL [Concomitant]
  12. METFORMIN [Concomitant]

REACTIONS (2)
  - Drug ineffective [None]
  - Incorrect dose administered [None]
